FAERS Safety Report 9204511 (Version 1)
Quarter: 2013Q1

REPORT INFORMATION
  Report Type: Spontaneous
  Country: US (occurrence: None)
  Receive Date: 20120709
  Receipt Date: 20120709
  Transmission Date: 20140127
  Serious: Yes (Disabling)
  Sender: FDA-Public Use
  Company Number: PHEH2011US008948

PATIENT
  Age: 87 Year
  Sex: Female

DRUGS (7)
  1. GLEEVEC (IMATINIB) UNKNOWN [Suspect]
     Indication: CHRONIC MYELOID LEUKAEMIA
     Route: 048
     Dates: start: 20100709, end: 20101210
  2. OMEPRAZOLE (OMEPRAZOLE) [Concomitant]
  3. VERAPAMIL (VERAPMAIL) [Concomitant]
  4. ENALAPRIL [Concomitant]
  5. LIPITOR (ATORVASTATIN CALCIUM) [Concomitant]
  6. ATENOLOL (ATENOLOL) [Concomitant]
  7. LASIX (FUROSEMIDE) [Concomitant]

REACTIONS (5)
  - Fatigue [None]
  - Swelling face [None]
  - Muscle spasms [None]
  - Rash [None]
  - Bowel movement irregularity [None]
